FAERS Safety Report 8961848 (Version 2)
Quarter: 2013Q1

REPORT INFORMATION
  Report Type: Spontaneous
  Country: JP (occurrence: JP)
  Receive Date: 20121213
  Receipt Date: 20130311
  Transmission Date: 20140127
  Serious: Yes (Death, Hospitalization)
  Sender: FDA-Public Use
  Company Number: JP-ELI_LILLY_AND_COMPANY-JP201212002730

PATIENT
  Age: 77 Year
  Sex: Male
  Weight: 75.9 kg

DRUGS (10)
  1. ALIMTA [Suspect]
     Indication: LUNG ADENOCARCINOMA STAGE IV
     Dosage: 946.5 MG, UNK
     Route: 042
     Dates: start: 20120405, end: 20120405
  2. CARBOPLATIN [Concomitant]
     Indication: LUNG ADENOCARCINOMA STAGE IV
     Dosage: 528.6 MG, UNK
     Route: 042
     Dates: start: 20120405, end: 20120405
  3. OLMETEC [Concomitant]
     Indication: HYPERTENSION
     Dosage: 20 MG, UNK
     Route: 048
  4. NORVASC [Concomitant]
     Indication: HYPERTENSION
     Dosage: 5 MG, QD
     Route: 048
  5. ACTOS [Concomitant]
     Indication: DIABETES MELLITUS
     Dosage: 30 MG, UNK
     Route: 048
  6. DAONIL [Concomitant]
     Indication: DIABETES MELLITUS
     Dosage: 1.25 MG, UNK
     Route: 048
  7. FOLIAMIN [Concomitant]
     Dosage: 0.5 MG, QD
     Route: 048
     Dates: start: 20120405
  8. GASRICK D [Concomitant]
     Indication: GASTRITIS
     Dosage: 10 MG, BID
     Route: 048
     Dates: start: 20120408
  9. MAGLAX [Concomitant]
     Indication: CONSTIPATION
     Dosage: 330 MG, TID
     Route: 048
     Dates: start: 20120410
  10. METHYCOBAL [Concomitant]
     Indication: VITAMIN SUPPLEMENTATION
     Dosage: 1000 UG, UNK
     Route: 030

REACTIONS (2)
  - Interstitial lung disease [Fatal]
  - Pneumothorax [Not Recovered/Not Resolved]
